FAERS Safety Report 11447705 (Version 1)
Quarter: 2015Q3

REPORT INFORMATION
  Report Type: Spontaneous
  Country: US (occurrence: US)
  Receive Date: 20150902
  Receipt Date: 20150902
  Transmission Date: 20151125
  Serious: No
  Sender: FDA-Public Use
  Company Number: US-009507513-1508USA013911

PATIENT
  Age: 20 Year
  Sex: Female
  Weight: 86.62 kg

DRUGS (1)
  1. NEXPLANON [Suspect]
     Active Substance: ETONOGESTREL
     Indication: CONTRACEPTION
     Dosage: 1 ROD/THREE YEARS
     Route: 059
     Dates: start: 20140210, end: 20150819

REACTIONS (2)
  - Device breakage [Recovered/Resolved]
  - Implant site pain [Recovering/Resolving]

NARRATIVE: CASE EVENT DATE: 20150628
